FAERS Safety Report 12282451 (Version 1)
Quarter: 2016Q2

REPORT INFORMATION
  Report Type: Spontaneous
  Country: CN (occurrence: CN)
  Receive Date: 20160419
  Receipt Date: 20160419
  Transmission Date: 20160815
  Serious: Yes (Other)
  Sender: FDA-Public Use
  Company Number: CN-009507513-1604CHN012006

PATIENT
  Age: 35 Year
  Sex: Male
  Weight: 75 kg

DRUGS (3)
  1. PEGINTRON [Suspect]
     Active Substance: PEGINTERFERON ALFA-2B
     Dosage: DOSE WAS ADJUSTED TO 60 ?G IH QW CONSIDERING THE AGGRAVATED BONE MARROW SUPPRESSION
     Route: 058
     Dates: start: 20151214
  2. PEGINTRON [Suspect]
     Active Substance: PEGINTERFERON ALFA-2B
     Dosage: DRUG WAS CONTINUED AND ADJUSTED TO 65 ?G IH QW AS REQUIRED FOR THE DISEASE CONDITION
     Route: 058
     Dates: start: 2015, end: 201512
  3. PEGINTRON [Suspect]
     Active Substance: PEGINTERFERON ALFA-2B
     Indication: VIRAL INFECTION
     Dosage: 80 MICROGRAM, WEEKLY
     Route: 058
     Dates: start: 20150707, end: 20151011

REACTIONS (1)
  - Bone marrow failure [Not Recovered/Not Resolved]

NARRATIVE: CASE EVENT DATE: 20151011
